FAERS Safety Report 14413457 (Version 1)
Quarter: 2018Q1

REPORT INFORMATION
  Report Type: Spontaneous
  Country: CN (occurrence: CN)
  Receive Date: 20180119
  Receipt Date: 20180119
  Transmission Date: 20180509
  Serious: Yes (Hospitalization)
  Sender: FDA-Public Use
  Company Number: CN-IMPAX LABORATORIES, INC-2018-IPXL-00064

PATIENT
  Age: 38 Year
  Sex: Male

DRUGS (6)
  1. DIVALPROEX SODIUM ER [Suspect]
     Active Substance: DIVALPROEX SODIUM
     Indication: SEIZURE
     Dosage: 1.0 G, DAILY
     Route: 065
  2. METHYLPREDNISOLONE. [Suspect]
     Active Substance: METHYLPREDNISOLONE
     Dosage: UNK
     Route: 048
  3. DIVALPROEX SODIUM ER [Suspect]
     Active Substance: DIVALPROEX SODIUM
     Indication: DEMYELINATION
     Dosage: 1.0 G, DAILY FOR 2 WEEKS
     Route: 065
  4. METHYLPREDNISOLONE. [Suspect]
     Active Substance: METHYLPREDNISOLONE
     Indication: DEMYELINATION
     Dosage: PULSE THERAPY, 1000 MG, DAILY
     Route: 042
  5. OXCARBAZEPINE. [Suspect]
     Active Substance: OXCARBAZEPINE
     Indication: SEIZURE
     Dosage: 600 MG, DAILY
     Route: 065
  6. DEXAMETHASONE. [Suspect]
     Active Substance: DEXAMETHASONE
     Indication: DEMYELINATION
     Dosage: 10 MG, DAILY
     Route: 065

REACTIONS (2)
  - Seizure [Recovered/Resolved]
  - Malignant glioma [Recovering/Resolving]
